FAERS Safety Report 5129940-5 (Version None)
Quarter: 2006Q4

REPORT INFORMATION
  Report Type: 
  Country: None (occurrence: None)
  Receive Date: 20061012
  Receipt Date: 20061002
  Transmission Date: 20070319
  Serious: Yes (Death)
  Sender: FDA-Public Use
  Company Number: 6026265

PATIENT
  Age: 90 Year
  Sex: Male

DRUGS (5)
  1. CONCOR COR 5 MG (COATED TABLET) (BISOPROLOL FUMARATE) [Suspect]
     Indication: CARDIAC FAILURE CHRONIC
     Dosage: 5,00 MG (5 MG, 1 IN 1 D) ORAL
     Route: 048
     Dates: start: 20060601, end: 20060701
  2. ACCUPRIL [Concomitant]
  3. HYDROCHLOROTHIAZID (25 MG) (HYDROCHLOROTHIAZIDE) [Concomitant]
  4. FURON (FUROSEMIDE) [Concomitant]
  5. CORVATON (MOLSIDOMINE) [Concomitant]

REACTIONS (1)
  - DEATH [None]
